FAERS Safety Report 12168979 (Version 1)
Quarter: 2016Q1

REPORT INFORMATION
  Report Type: Spontaneous
  Country: NL (occurrence: NL)
  Receive Date: 20160310
  Receipt Date: 20160310
  Transmission Date: 20160526
  Serious: Yes (Other)
  Sender: FDA-Public Use
  Company Number: NL-PFIZER INC-2016147096

PATIENT
  Age: 52 Year
  Sex: Female

DRUGS (4)
  1. SULFASALAZINE. [Suspect]
     Active Substance: SULFASALAZINE
  2. ENBREL [Concomitant]
     Active Substance: ETANERCEPT
  3. METOJECT [Concomitant]
     Active Substance: METHOTREXATE SODIUM
  4. RINOCORT [Concomitant]

REACTIONS (1)
  - Orbital oedema [Unknown]
